FAERS Safety Report 26129053 (Version 1)
Quarter: 2025Q4

REPORT INFORMATION
  Report Type: Spontaneous
  Country: EU (occurrence: EU)
  Receive Date: 20251208
  Receipt Date: 20251208
  Transmission Date: 20260118
  Serious: Yes (Other)
  Sender: MACLEODS
  Company Number: EU-MLMSERVICE-20230417-4229819-1

PATIENT
  Sex: Male

DRUGS (3)
  1. DOXYCYCLINE [Suspect]
     Active Substance: DOXYCYCLINE
     Indication: Folliculitis
     Route: 065
     Dates: start: 2021
  2. LAZERTINIB [Suspect]
     Active Substance: LAZERTINIB
     Indication: Bronchial carcinoma
     Route: 065
     Dates: start: 202105
  3. AMIVANTAMAB [Concomitant]
     Active Substance: AMIVANTAMAB
     Route: 065
     Dates: start: 202105

REACTIONS (2)
  - Lymphadenopathy [Recovered/Resolved]
  - Drug eruption [Recovered/Resolved]

NARRATIVE: CASE EVENT DATE: 20210801
